FAERS Safety Report 5331012-1 (Version None)
Quarter: 2007Q2

REPORT INFORMATION
  Report Type: 
  Country: None (occurrence: None)
  Receive Date: 20070517
  Receipt Date: 20070503
  Transmission Date: 20071010
  Serious: Yes (Other)
  Sender: FDA-Public Use
  Company Number: S07-UKI-02033-01

PATIENT
  Age: 22 Year
  Sex: Female

DRUGS (8)
  1. CITALOPRAM HYDROBROMIDE [Suspect]
     Indication: DEPRESSION
     Dosage: 50 MG QD PO
     Route: 048
     Dates: start: 20061201, end: 20070401
  2. CITALOPRAM HYDROBROMIDE [Suspect]
     Indication: LEARNING DISABILITY
     Dosage: 50 MG QD PO
     Route: 048
     Dates: start: 20061201, end: 20070401
  3. CITALOPRAM HYDROBROMIDE [Suspect]
     Indication: DEPRESSION
     Dosage: 40 MG QD PO
     Route: 048
     Dates: start: 20070401
  4. CITALOPRAM HYDROBROMIDE [Suspect]
     Indication: LEARNING DISABILITY
     Dosage: 40 MG QD PO
     Route: 048
     Dates: start: 20070401
  5. CITALOPRAM HYDROBROMIDE [Suspect]
     Indication: DEPRESSION
     Dosage: 40 MG QD PO
     Route: 048
     Dates: end: 20061201
  6. CITALOPRAM HYDROBROMIDE [Suspect]
     Indication: LEARNING DISABILITY
     Dosage: 40 MG QD PO
     Route: 048
     Dates: end: 20061201
  7. VALPROATE SODIUM [Concomitant]
  8. LEVETIRACETAM [Concomitant]

REACTIONS (1)
  - DYSKINESIA [None]
